FAERS Safety Report 5927026-0 (Version None)
Quarter: 2008Q4

REPORT INFORMATION
  Report Type: 
  Country: None (occurrence: None)
  Receive Date: 20081021
  Receipt Date: 20081021
  Transmission Date: 20090506
  Serious: No
  Sender: FDA-Public Use
  Company Number: None

PATIENT
  Age: 28 Year
  Sex: Male
  Weight: 86.8 kg

DRUGS (2)
  1. QUETIAPINE FUMARATE [Suspect]
     Indication: BIPOLAR DISORDER
     Dosage: 25 MG AT BEDTIME PO
     Route: 048
     Dates: start: 20080407, end: 20080620
  2. QUETIAPINE FUMARATE [Suspect]
     Indication: MANIA
     Dosage: 25 MG AT BEDTIME PO
     Route: 048
     Dates: start: 20080407, end: 20080620

REACTIONS (1)
  - HYPERHIDROSIS [None]
